FAERS Safety Report 8588912-9 (Version None)
Quarter: 2012Q3

REPORT INFORMATION
  Report Type: 
  Country: None (occurrence: None)
  Receive Date: 20120813
  Receipt Date: 20120802
  Transmission Date: 20120928
  Serious: Yes (Hospitalization)
  Sender: FDA-Public Use
  Company Number: AU-BRISTOL-MYERS SQUIBB COMPANY-16837635

PATIENT
  Age: 69 Year
  Sex: Female

DRUGS (8)
  1. LORATADINE [Concomitant]
     Indication: PREMEDICATION
  2. ZOCOR [Concomitant]
  3. SIMVASTATIN [Concomitant]
  4. MELOXICAM [Concomitant]
  5. DEXAMETHASONE [Concomitant]
     Indication: PREMEDICATION
  6. ERBITUX [Suspect]
     Indication: HEAD AND NECK CANCER
     Dosage: WKLY DOSE OF 430MGX5(430MG/WK). 25JUN12-UNK 690MG/DY UNK-23JUL12 430MG/WK 2JUL12,9JUL12,16JUL12
     Dates: start: 20120625, end: 20120723
  7. IRBESARTAN [Concomitant]
  8. FELODIPINE [Concomitant]

REACTIONS (6)
  - BLOOD ALKALINE PHOSPHATASE INCREASED [None]
  - THROMBOCYTOPENIA [None]
  - BLOOD UREA INCREASED [None]
  - BLOOD CALCIUM INCREASED [None]
  - GAMMA-GLUTAMYLTRANSFERASE INCREASED [None]
  - ALANINE AMINOTRANSFERASE INCREASED [None]
